FAERS Safety Report 18910541 (Version 1)
Quarter: 2021Q1

REPORT INFORMATION
  Report Type: Report from Study
  Country: US (occurrence: US)
  Receive Date: 20210218
  Receipt Date: 20210218
  Transmission Date: 20210420
  Serious: Yes (Hospitalization, Other)
  Sender: FDA-Public Use
  Company Number: US-GILEAD-2021-0517340

PATIENT
  Age: 52 Year
  Sex: Female

DRUGS (24)
  1. MAGNESIUM [Concomitant]
     Active Substance: MAGNESIUM
  2. AZITHROMYCIN ANHYDROUS. [Concomitant]
     Active Substance: AZITHROMYCIN ANHYDROUS
  3. AZTREONAM LYSINE [Suspect]
     Active Substance: AZTREONAM LYSINE
     Indication: CYSTIC FIBROSIS LUNG
     Dosage: 75 MG, TID, 28 DAYS ON, 28 DAYS OFF
     Route: 065
  4. TOBI [Concomitant]
     Active Substance: TOBRAMYCIN
  5. BUDESONIDE. [Concomitant]
     Active Substance: BUDESONIDE
  6. VENTOLIN HFA [Concomitant]
     Active Substance: ALBUTEROL SULFATE
  7. IPRATROPIUM/ALBUTEROL [Concomitant]
     Active Substance: ALBUTEROL\IPRATROPIUM
  8. COMBIVENT RESPIMAT [Concomitant]
     Active Substance: ALBUTEROL SULFATE\IPRATROPIUM BROMIDE
  9. ZYRTEC [Concomitant]
     Active Substance: CETIRIZINE HYDROCHLORIDE
  10. PULMOZYME [Concomitant]
     Active Substance: DORNASE ALFA
  11. ALPRAZOLAM. [Concomitant]
     Active Substance: ALPRAZOLAM
  12. ACETYLCYSTEINE. [Concomitant]
     Active Substance: ACETYLCYSTEINE
  13. URSODIOL. [Concomitant]
     Active Substance: URSODIOL
  14. CALCIUM [Concomitant]
     Active Substance: CALCIUM
  15. CREON [Concomitant]
     Active Substance: PANCRELIPASE AMYLASE\PANCRELIPASE LIPASE\PANCRELIPASE PROTEASE
  16. TRIKAFTA [Concomitant]
     Active Substance: ELEXACAFTOR\IVACAFTOR\TEZACAFTOR
  17. MEROPENEM. [Concomitant]
     Active Substance: MEROPENEM
  18. VITAMIN D3 [Concomitant]
     Active Substance: CHOLECALCIFEROL
  19. PREDNISONE. [Concomitant]
     Active Substance: PREDNISONE
  20. TOBRAMYCIN. [Concomitant]
     Active Substance: TOBRAMYCIN
  21. LORAZEPAM. [Concomitant]
     Active Substance: LORAZEPAM
  22. CYCLOBENZAPRINE HCL [Concomitant]
     Active Substance: CYCLOBENZAPRINE HYDROCHLORIDE
  23. MULTIVITAMINS [VITAMINS NOS] [Concomitant]
     Active Substance: VITAMINS
  24. HYPERSAL [Concomitant]
     Active Substance: SODIUM CHLORIDE

REACTIONS (2)
  - Hip fracture [Unknown]
  - Heart rate increased [Unknown]
